FAERS Safety Report 18811277 (Version 3)
Quarter: 2021Q2

REPORT INFORMATION
  Report Type: Report from Study
  Country: US (occurrence: US)
  Receive Date: 20210130
  Receipt Date: 20210430
  Transmission Date: 20210717
  Serious: Yes (Other)
  Sender: FDA-Public Use
  Company Number: US-ACADIA PHARMACEUTICALS INC.-ACA-2021-PIM-000173

PATIENT
  Age: 79 Year
  Sex: Male

DRUGS (16)
  1. NUPLAZID [Suspect]
     Active Substance: PIMAVANSERIN TARTRATE
     Indication: HALLUCINATION
  2. MYRBETRIQ [Concomitant]
     Active Substance: MIRABEGRON
  3. LEVETIRACETAM. [Concomitant]
     Active Substance: LEVETIRACETAM
  4. VITAMIN B12 [Concomitant]
     Active Substance: CYANOCOBALAMIN
  5. CARBIDOPA/LEVODOPA [Concomitant]
     Active Substance: CARBIDOPA\LEVODOPA
  6. NUPLAZID [Suspect]
     Active Substance: PIMAVANSERIN TARTRATE
     Indication: DELUSION
  7. LISINOPRIL. [Concomitant]
     Active Substance: LISINOPRIL
  8. FINASTERIDE. [Concomitant]
     Active Substance: FINASTERIDE
  9. DONEPEZIL. [Concomitant]
     Active Substance: DONEPEZIL
  10. ATORVASTATIN [Concomitant]
     Active Substance: ATORVASTATIN
  11. COENZYME Q10 [Concomitant]
     Active Substance: DIETARY SUPPLEMENT\UBIDECARENONE
  12. NUPLAZID [Suspect]
     Active Substance: PIMAVANSERIN TARTRATE
     Indication: PARKINSON^S DISEASE PSYCHOSIS
     Dosage: 10 MILLIGRAM, QD
     Route: 048
     Dates: start: 20210107
  13. BUPROPION. [Concomitant]
     Active Substance: BUPROPION
  14. VITAMINS NOS [Concomitant]
     Active Substance: VITAMINS
  15. LUTEIN [XANTOFYL] [Concomitant]
  16. ASPIRIN [ACETYLSALICYLIC ACID] [Concomitant]
     Active Substance: ASPIRIN

REACTIONS (9)
  - Hallucination [Not Recovered/Not Resolved]
  - Hallucination [Unknown]
  - Delusion [Unknown]
  - Drug ineffective [Unknown]
  - Underdose [Not Recovered/Not Resolved]
  - Oedema peripheral [Not Recovered/Not Resolved]
  - Delusion [Not Recovered/Not Resolved]
  - Confusional state [Not Recovered/Not Resolved]
  - Altered state of consciousness [Not Recovered/Not Resolved]

NARRATIVE: CASE EVENT DATE: 202101
